FAERS Safety Report 7386560-X (Version None)
Quarter: 2011Q1

REPORT INFORMATION
  Report Type: 
  Country: None (occurrence: None)
  Receive Date: 20110331
  Receipt Date: 20110323
  Transmission Date: 20110831
  Serious: Yes (Hospitalization)
  Sender: FDA-Public Use
  Company Number: FR-ROCHE-765974

PATIENT
  Sex: Male
  Weight: 66 kg

DRUGS (26)
  1. BEVACIZUMAB [Suspect]
     Dosage: LAST DOSE PRIOR TO SAE: 08 FEB 2011. CUMULATIVE DOSE SINCE THE 1ST ADMINISTRATION: 2880 MG.
     Route: 042
  2. DURAGESIC-100 [Concomitant]
  3. NEXIUM [Concomitant]
  4. ACTISKENAN [Concomitant]
     Dosage: DOSE; 30X6
  5. EDUCTYL [Concomitant]
  6. PAROXETINE HCL [Concomitant]
  7. ZOLPIDEM [Concomitant]
  8. BEVACIZUMAB [Suspect]
     Indication: INTRAOCULAR MELANOMA
     Dosage: LAST DOSE PRIOR TO SAE: 28 DECEMBER 2010
     Route: 042
     Dates: start: 20101228
  9. SOLUPRED [Concomitant]
  10. BEVACIZUMAB [Suspect]
     Dosage: LAST DOSE PRIOR TO SAE: 22 FEB 2011
     Route: 042
  11. DURAGESIC-100 [Concomitant]
  12. XANAX [Concomitant]
     Dosage: AS REQUIRED
  13. DURAGESIC-100 [Concomitant]
     Dosage: 125UG/72HOURS
  14. SOLUPRED [Concomitant]
  15. ALPRAZOLAM [Concomitant]
  16. EFFEXOR [Concomitant]
  17. TEMOZOLOMIDE [Suspect]
     Dosage: LAST DOSE PRIOR TO SAE: 07 MARCH 2011
     Route: 048
  18. ZOPHREN [Concomitant]
     Dosage: AS REQUIRED.
  19. RIVOTRIL [Concomitant]
  20. LYRICA [Concomitant]
     Dosage: DOSE: 75X2
  21. TEMOZOLOMIDE [Suspect]
     Indication: INTRAOCULAR MELANOMA
     Route: 048
     Dates: start: 20101221, end: 20110104
  22. TEMOZOLOMIDE [Suspect]
     Dosage: CUMULATIVE DOSE SINCE THE 1ST ADMINISTRATION: 7840 MG.
     Route: 048
     Dates: end: 20110207
  23. NEXIUM [Concomitant]
  24. EFFERALGAN [Concomitant]
  25. ACTISKENAN [Concomitant]
     Dosage: AS NEEDED
  26. PARACETAMOL [Concomitant]

REACTIONS (2)
  - GENERAL PHYSICAL HEALTH DETERIORATION [None]
  - VOMITING [None]
